FAERS Safety Report 10884674 (Version 1)
Quarter: 2015Q1

REPORT INFORMATION
  Report Type: Spontaneous
  Country: US (occurrence: None)
  Receive Date: 20150227
  Receipt Date: 20150227
  Transmission Date: 20150721
  Serious: Yes (Hospitalization, Disabling)
  Sender: FDA-Public Use
  Company Number: None

PATIENT
  Age: 24 Year
  Sex: Female
  Weight: 53.52 kg

DRUGS (1)
  1. VANCOMYCIN [Suspect]
     Active Substance: VANCOMYCIN
     Indication: OSTEOMYELITIS
     Dates: start: 20150102, end: 20150205

REACTIONS (8)
  - Red man syndrome [None]
  - Skin discolouration [None]
  - Pyrexia [None]
  - White blood cell count increased [None]
  - Drug reaction with eosinophilia and systemic symptoms [None]
  - Swelling [None]
  - Dyspnoea [None]
  - Hepatic function abnormal [None]

NARRATIVE: CASE EVENT DATE: 20150202
